FAERS Safety Report 10476832 (Version 1)
Quarter: 2014Q3

REPORT INFORMATION
  Report Type: Spontaneous
  Country: US (occurrence: US)
  Receive Date: 20140926
  Receipt Date: 20140926
  Transmission Date: 20150326
  Serious: Yes (Hospitalization)
  Sender: FDA-Public Use
  Company Number: US-NOVOPROD-423210

PATIENT
  Age: 83 Year
  Sex: Female

DRUGS (3)
  1. NOVOLOG [Suspect]
     Active Substance: INSULIN ASPART
     Indication: DIABETES MELLITUS
     Dosage: SLIDING SCALE
     Route: 058
  2. LANTUS [Suspect]
     Active Substance: INSULIN GLARGINE
     Indication: DIABETES MELLITUS
     Dosage: 40 UNITS AT BEDTIME
     Route: 058
  3. LANTUS [Suspect]
     Active Substance: INSULIN GLARGINE
     Dosage: 20 UNITS AT BEDTIME
     Route: 058

REACTIONS (3)
  - Blood glucose increased [Recovered/Resolved]
  - Heart rate decreased [Recovered/Resolved]
  - Blood glucose decreased [Recovered/Resolved]
